FAERS Safety Report 6553080-1 (Version None)
Quarter: 2010Q1

REPORT INFORMATION
  Report Type: 
  Country: None (occurrence: None)
  Receive Date: 20100127
  Receipt Date: 20090225
  Transmission Date: 20100710
  Serious: No
  Sender: FDA-Public Use
  Company Number: A0756459A

PATIENT
  Sex: Female

DRUGS (2)
  1. IMITREX [Suspect]
     Indication: MIGRAINE
     Dosage: 4MG AS REQUIRED
     Route: 058
     Dates: start: 20080101, end: 20081108
  2. GSK AUTOINJECTOR [Suspect]
     Indication: MIGRAINE

REACTIONS (2)
  - INJECTION SITE HAEMATOMA [None]
  - PRODUCT QUALITY ISSUE [None]
